FAERS Safety Report 6636342-9 (Version None)
Quarter: 2010Q1

REPORT INFORMATION
  Report Type: 
  Country: None (occurrence: None)
  Receive Date: 20100226
  Receipt Date: 20090106
  Transmission Date: 20100710
  Serious: Yes (Disabling)
  Sender: FDA-Public Use
  Company Number: WAES 0901USA00368

PATIENT
  Sex: Female

DRUGS (1)
  1. PRINIVIL [Suspect]
     Dosage: 20 MG/PO
     Route: 048

REACTIONS (1)
  - COUGH [None]
